FAERS Safety Report 4602091-1 (Version None)
Quarter: 2005Q1

REPORT INFORMATION
  Report Type: 
  Country: None (occurrence: None)
  Receive Date: 20050308
  Receipt Date: 20050110
  Transmission Date: 20050727
  Serious: Yes (Life-Threatening, Disabling)
  Sender: FDA-Public Use
  Company Number: DE-MERCK-0501DEU00130

PATIENT
  Age: 65 Year
  Sex: Female
  Weight: 67 kg

DRUGS (4)
  1. VIOXX [Suspect]
     Indication: OSTEOARTHRITIS
     Route: 048
     Dates: start: 20020201, end: 20040930
  2. VIOXX [Suspect]
     Indication: OSTEOARTHRITIS
     Route: 048
     Dates: start: 20020201, end: 20040930
  3. ENALAPRIL MALEATE [Concomitant]
     Indication: ESSENTIAL HYPERTENSION
     Route: 048
  4. GLYBURIDE [Concomitant]
     Indication: DIABETES MELLITUS NON-INSULIN-DEPENDENT
     Route: 048

REACTIONS (4)
  - DEEP VEIN THROMBOSIS [None]
  - GASTRITIS [None]
  - PAIN IN EXTREMITY [None]
  - THROMBOSIS [None]
